FAERS Safety Report 8044000 (Version 3)
Quarter: 2013Q1

REPORT INFORMATION
  Report Type: Report from Study
  Country: US (occurrence: US)
  Receive Date: 20110719
  Receipt Date: 20130319
  Transmission Date: 20140127
  Serious: Yes (Other)
  Sender: FDA-Public Use
  Company Number: US-PFIZER INC-2011082410

PATIENT
  Age: 61 Year
  Sex: Female

DRUGS (3)
  1. LYRICA [Suspect]
     Dosage: UNK
  2. LEVOXYL [Suspect]
     Dosage: UNK
     Route: 048
  3. TRAZODONE [Suspect]
     Dosage: UNK

REACTIONS (7)
  - Mental impairment [Unknown]
  - Aphasia [Unknown]
  - Motor dysfunction [Unknown]
  - Myoclonus [Unknown]
  - Drug hypersensitivity [Unknown]
  - Local swelling [Unknown]
  - Rash [Unknown]
